FAERS Safety Report 6735885-7 (Version None)
Quarter: 2010Q2

REPORT INFORMATION
  Report Type: 
  Country: None (occurrence: None)
  Receive Date: 20100521
  Receipt Date: 20100513
  Transmission Date: 20101027
  Serious: Yes (Other)
  Sender: FDA-Public Use
  Company Number: A0860315A

PATIENT
  Sex: Female

DRUGS (2)
  1. LAMICTAL [Suspect]
  2. TOPAMAX [Suspect]

REACTIONS (1)
  - CONVULSION [None]
